FAERS Safety Report 5699819-9 (Version None)
Quarter: 2008Q2

REPORT INFORMATION
  Report Type: 
  Country: None (occurrence: None)
  Receive Date: 20080410
  Receipt Date: 20080312
  Transmission Date: 20081010
  Serious: No
  Sender: FDA-Public Use
  Company Number: US-BOEHRINGER INGELHEIM GMBH, GERMANY-2008-BP-03899BP

PATIENT
  Age: 70 Year
  Sex: Female

DRUGS (2)
  1. MIRAPEX [Suspect]
     Route: 048
     Dates: start: 20080307
  2. MIRAPEX [Suspect]
     Route: 048
     Dates: start: 20080301

REACTIONS (2)
  - MUSCULAR WEAKNESS [None]
  - SOMNOLENCE [None]
